FAERS Safety Report 6063167-8 (Version None)
Quarter: 2009Q1

REPORT INFORMATION
  Report Type: 
  Country: None (occurrence: None)
  Receive Date: 20090203
  Receipt Date: 20081226
  Transmission Date: 20090719
  Serious: Yes (Hospitalization)
  Sender: FDA-Public Use
  Company Number: JP-PFIZER INC-2009162153

PATIENT

DRUGS (9)
  1. SILDENAFIL CITRATE [Suspect]
     Indication: PULMONARY HYPERTENSION
     Dosage: 20 MG, 3X/DAY
     Route: 048
     Dates: start: 20080930, end: 20081007
  2. SILDENAFIL CITRATE [Suspect]
     Indication: INTERSTITIAL LUNG DISEASE
  3. WARFARIN [Concomitant]
     Dosage: UNK
     Route: 048
  4. OMEPRAL [Concomitant]
     Dosage: UNK
     Route: 048
  5. DORNER [Concomitant]
     Dosage: UNK
     Route: 048
  6. ZYRTEC [Concomitant]
     Dosage: UNK
     Route: 048
  7. PREDNISOLONE [Concomitant]
     Dosage: UNK
     Route: 048
  8. BROCIN [Concomitant]
     Dosage: UNK
     Route: 048
  9. APRICOT KERNEL WATER [Concomitant]
     Dosage: UNK
     Route: 048

REACTIONS (1)
  - PULMONARY HYPERTENSION [None]
